FAERS Safety Report 21966908 (Version 3)
Quarter: 2025Q1

REPORT INFORMATION
  Report Type: Spontaneous
  Country: US (occurrence: US)
  Receive Date: 20230208
  Receipt Date: 20250204
  Transmission Date: 20250409
  Serious: Yes (Other)
  Sender: NOVARTIS
  Company Number: US-002147023-NVSC2023US021991

PATIENT
  Age: 64 Year
  Sex: Female

DRUGS (2)
  1. LETROZOLE [Suspect]
     Active Substance: LETROZOLE
     Indication: Hormone receptor positive breast cancer
     Route: 065
     Dates: start: 20220111
  2. IBRANCE [Suspect]
     Active Substance: PALBOCICLIB
     Indication: Hormone receptor positive breast cancer
     Dosage: 125 MG, QD (CYCLIC (ONCE DAILY (QD) FOR 21 DAYS THEN 7 DAYS OFF))
     Route: 048
     Dates: start: 20220216

REACTIONS (5)
  - Neutropenia [Unknown]
  - Metastases to bone [Unknown]
  - Diarrhoea [Unknown]
  - Alopecia [Unknown]
  - Emotional disorder [Unknown]

NARRATIVE: CASE EVENT DATE: 20230127
